FAERS Safety Report 19063177 (Version 1)
Quarter: 2021Q1

REPORT INFORMATION
  Report Type: Spontaneous
  Country: US (occurrence: US)
  Receive Date: 20210326
  Receipt Date: 20210326
  Transmission Date: 20210420
  Serious: No
  Sender: FDA-Public Use
  Company Number: None

PATIENT
  Age: 93 Year
  Sex: Female
  Weight: 43.2 kg

DRUGS (11)
  1. IRON SUPPLEMENT CHILDRENS [Concomitant]
  2. TYLENOL [Concomitant]
     Active Substance: ACETAMINOPHEN
  3. FIBER DIET [Concomitant]
  4. CARVEDILOL. [Concomitant]
     Active Substance: CARVEDILOL
  5. STOOL SOFTENER (DOCUSATE) [Concomitant]
     Active Substance: DOCUSATE
  6. PROMACTA [Suspect]
     Active Substance: ELTROMBOPAG OLAMINE
     Indication: MYELODYSPLASTIC SYNDROME
     Route: 048
     Dates: start: 20210223, end: 20210326
  7. MULTIVITAMIN ADULT [Concomitant]
  8. CALCIUM?MAGNESIUM [Concomitant]
     Active Substance: CALCIUM\MAGNESIUM
  9. NITROGLYCERIN ER [Concomitant]
     Active Substance: NITROGLYCERIN
  10. LEUKINE [Concomitant]
     Active Substance: SARGRAMOSTIM
  11. RETACRIT [Concomitant]
     Active Substance: EPOETIN ALFA-EPBX

REACTIONS (1)
  - Hospice care [None]

NARRATIVE: CASE EVENT DATE: 20210326
